FAERS Safety Report 21627906 (Version 1)
Quarter: 2022Q4

REPORT INFORMATION
  Report Type: Spontaneous
  Country: US (occurrence: US)
  Receive Date: 20221122
  Receipt Date: 20221122
  Transmission Date: 20230112
  Serious: No
  Sender: FDA-Public Use
  Company Number: US-BAYER-2022A157254

PATIENT
  Age: 68 Year
  Sex: Female

DRUGS (2)
  1. CLIMARA [Suspect]
     Active Substance: ESTRADIOL
     Dosage: DAILY DOSE .075 MG
     Route: 062
  2. VIVELLE-DOT [Suspect]
     Active Substance: ESTRADIOL
     Dosage: DAILY DOSE .05 MG
     Route: 062

REACTIONS (1)
  - Drug ineffective [None]
